FAERS Safety Report 7676536-7 (Version None)
Quarter: 2011Q3

REPORT INFORMATION
  Report Type: 
  Country: None (occurrence: None)
  Receive Date: 20110811
  Receipt Date: 20110728
  Transmission Date: 20111222
  Serious: Yes (Life-Threatening, Hospitalization)
  Sender: FDA-Public Use
  Company Number: GB-RANBAXY-2011R1-41323

PATIENT
  Age: 91 Year
  Sex: Female
  Weight: 60 kg

DRUGS (5)
  1. TRIMETHOPRIM [Interacting]
     Indication: URINARY TRACT INFECTION
     Dosage: 200 MG, BID
     Route: 048
     Dates: start: 20101229, end: 20110101
  2. RAMIPRIL [Suspect]
     Indication: CARDIAC FAILURE CONGESTIVE
     Dosage: 10 MG, UNK
     Route: 048
  3. CARVEDILOL [Interacting]
     Indication: CARDIAC FAILURE CONGESTIVE
     Dosage: 3.75 MG, UNK
     Route: 048
  4. WARFARIN SODIUM [Interacting]
     Indication: ATRIAL FIBRILLATION
     Route: 048
  5. BENDROFLUAZIDE [Interacting]
     Indication: CARDIAC FAILURE CONGESTIVE
     Dosage: 2.5 MG, UNK
     Route: 048

REACTIONS (3)
  - HYPONATRAEMIA [None]
  - CONFUSIONAL STATE [None]
  - DRUG INTERACTION [None]
